FAERS Safety Report 18531703 (Version 1)
Quarter: 2020Q4

REPORT INFORMATION
  Report Type: Other
  Country: CA (occurrence: CA)
  Receive Date: 20201123
  Receipt Date: 20201123
  Transmission Date: 20210114
  Serious: Yes (Other)
  Sender: FDA-Public Use
  Company Number: CA-CELLTRION INC.-2020CA031790

PATIENT

DRUGS (4)
  1. RITUXIMAB (UNKNOWN) [Suspect]
     Active Substance: RITUXIMAB
     Indication: GLOMERULONEPHRITIS
     Route: 065
  2. MYCOPHENOLATE MOFETIL. [Suspect]
     Active Substance: MYCOPHENOLATE MOFETIL
     Indication: GLOMERULONEPHRITIS
     Dosage: 500 MILLIGRAM, 2 EVERY 1 DAY
     Route: 048
  3. MYCOPHENOLATE MOFETIL. [Suspect]
     Active Substance: MYCOPHENOLATE MOFETIL
     Dosage: 1 GRAM, 2 EVERY 1 DAY
     Route: 048
  4. MYCOPHENOLATE MOFETIL. [Suspect]
     Active Substance: MYCOPHENOLATE MOFETIL
     Dosage: 750 MILLIGRAM, 2 EVERY 1 DAY
     Route: 048

REACTIONS (6)
  - Gastrointestinal disorder [Unknown]
  - Weight decreased [Unknown]
  - Intentional product use issue [Unknown]
  - Off label use [Unknown]
  - Nephrotic syndrome [Unknown]
  - Oedema [Unknown]
